FAERS Safety Report 14280928 (Version 3)
Quarter: 2017Q4

REPORT INFORMATION
  Report Type: Spontaneous
  Country: US (occurrence: US)
  Receive Date: 20171213
  Receipt Date: 20171220
  Transmission Date: 20180321
  Serious: Yes (Other)
  Sender: FDA-Public Use
  Company Number: US-GLAXOSMITHKLINE-US2017GSK191043

PATIENT
  Age: 78 Year
  Sex: Male

DRUGS (3)
  1. ANORO ELLIPTA [Suspect]
     Active Substance: UMECLIDINIUM BROMIDE\VILANTEROL TRIFENATATE
     Indication: CHRONIC OBSTRUCTIVE PULMONARY DISEASE
     Dosage: 1 PUFF(S), QD
     Route: 055
     Dates: start: 201709
  2. ANORO ELLIPTA [Suspect]
     Active Substance: UMECLIDINIUM BROMIDE\VILANTEROL TRIFENATATE
     Dosage: UNK, PRN
     Route: 055
  3. ANORO ELLIPTA [Suspect]
     Active Substance: UMECLIDINIUM BROMIDE\VILANTEROL TRIFENATATE
     Dosage: 2 PUFF(S), UNK
     Route: 055
     Dates: start: 20171209

REACTIONS (6)
  - Eye disorder [Not Recovered/Not Resolved]
  - Accidental overdose [Unknown]
  - Blindness transient [Recovered/Resolved]
  - Visual impairment [Recovered/Resolved]
  - Inappropriate schedule of drug administration [Unknown]
  - Intentional underdose [Unknown]

NARRATIVE: CASE EVENT DATE: 201709
